FAERS Safety Report 5990480-2 (Version None)
Quarter: 2008Q4

REPORT INFORMATION
  Report Type: 
  Country: None (occurrence: None)
  Receive Date: 20081202
  Receipt Date: 20080423
  Transmission Date: 20090506
  Serious: Yes (Other)
  Sender: FDA-Public Use
  Company Number: WAES 0804USA04891

PATIENT
  Age: 53 Year
  Sex: Female
  Weight: 61.2356 kg

DRUGS (4)
  1. FOSAMAX [Suspect]
     Indication: OSTEOPOROSIS
     Dosage: 70 MG/WKY/PO
     Route: 048
     Dates: start: 20011203, end: 20060501
  2. CELEXA [Concomitant]
  3. TYLENOL W/ CODEINE NO. 3 [Concomitant]
  4. XANAX [Concomitant]

REACTIONS (9)
  - BACK PAIN [None]
  - DEPRESSION [None]
  - NECK PAIN [None]
  - OSTEOARTHRITIS [None]
  - OSTEONECROSIS [None]
  - OSTEOPOROSIS [None]
  - PAIN IN EXTREMITY [None]
  - TOOTH LOSS [None]
  - WEIGHT INCREASED [None]
